FAERS Safety Report 7418265 (Version 2)
Quarter: 2013Q4

REPORT INFORMATION
  Report Type: Report from Study
  Country: JP (occurrence: JP)
  Receive Date: 20100614
  Receipt Date: 20131001
  Transmission Date: 20140711
  Serious: Yes (Death, Life-Threatening)
  Sender: FDA-Public Use
  Company Number: PHHY2010JP35329

PATIENT
  Age: 86 Year
  Sex: Male

DRUGS (8)
  1. AMN107 [Suspect]
     Indication: CHRONIC MYELOID LEUKAEMIA
     Dosage: 200 MG, DAILY
     Route: 048
     Dates: start: 20100414
  2. LASIX [Concomitant]
     Dosage: 60 MG, UNK
     Route: 048
     Dates: start: 20100414
  3. LASIX [Concomitant]
     Dosage: 320 MG, UNK
     Route: 042
  4. INOVAN [Concomitant]
     Dosage: 206 MG, UNK
     Dates: start: 20100420
  5. FRANDOL [Concomitant]
     Dosage: 40 MG, UNK
     Dates: start: 20100414
  6. ALDACTONE [Concomitant]
     Dosage: 25 MG, UNK
     Route: 048
     Dates: start: 20100414, end: 20100418
  7. WARFARIN [Concomitant]
     Dosage: 1.5 MG, UNK
     Route: 048
     Dates: start: 20100414, end: 20100426
  8. ZYLORIC [Concomitant]
     Dosage: 100 MG, UNK
     Route: 048
     Dates: start: 20100414

REACTIONS (4)
  - Cardiac failure [Fatal]
  - Blood urea increased [Not Recovered/Not Resolved]
  - Blood creatinine increased [Not Recovered/Not Resolved]
  - Blood uric acid increased [Not Recovered/Not Resolved]
